FAERS Safety Report 13134928 (Version 2)
Quarter: 2018Q1

REPORT INFORMATION
  Report Type: Spontaneous
  Country: US (occurrence: US)
  Receive Date: 20170120
  Receipt Date: 20180302
  Transmission Date: 20180508
  Serious: Yes (Other)
  Sender: FDA-Public Use
  Company Number: US-SA-2017SA007871

PATIENT
  Sex: Female

DRUGS (1)
  1. LEMTRADA [Suspect]
     Active Substance: ALEMTUZUMAB
     Route: 042

REACTIONS (5)
  - Respiratory tract congestion [Unknown]
  - Pyrexia [Unknown]
  - Placental disorder [Unknown]
  - Retroplacental haematoma [Unknown]
  - Exposure during pregnancy [Unknown]
